FAERS Safety Report 10023452 (Version 4)
Quarter: 2014Q3

REPORT INFORMATION
  Report Type: Spontaneous
  Country: US (occurrence: None)
  Receive Date: 20131224
  Receipt Date: 20140828
  Transmission Date: 20150326
  Serious: Yes (Hospitalization, Other)
  Sender: FDA-Public Use
  Company Number: ADR-2013-02196

PATIENT
  Age: 66 Year
  Sex: Male

DRUGS (1)
  1. BACLOFEN. [Suspect]
     Active Substance: BACLOFEN
     Indication: MUSCLE SPASTICITY

REACTIONS (10)
  - Performance status decreased [None]
  - Staphylococcal infection [None]
  - Post procedural infection [None]
  - Device extrusion [None]
  - Device failure [None]
  - Skin disorder [None]
  - Pain in extremity [None]
  - Implant site erythema [None]
  - Device connection issue [None]
  - Refusal of treatment by patient [None]
